FAERS Safety Report 9398278 (Version 5)
Quarter: 2014Q3

REPORT INFORMATION
  Report Type: Spontaneous
  Country: US (occurrence: US)
  Receive Date: 20130712
  Receipt Date: 20140701
  Transmission Date: 20150326
  Serious: Yes (Hospitalization, Other)
  Sender: FDA-Public Use
  Company Number: US-009507513-1307USA004432

PATIENT
  Sex: Female
  Weight: 71.2 kg

DRUGS (7)
  1. ALENDRONATE SODIUM. [Suspect]
     Active Substance: ALENDRONATE SODIUM
     Indication: OSTEOPENIA
     Dosage: 70 MG, QW
     Route: 048
     Dates: start: 2010, end: 2011
  2. FOSAMAX [Suspect]
     Active Substance: ALENDRONATE SODIUM
     Indication: OSTEOPOROSIS
  3. HYDROCHLOROTHIAZIDE. [Concomitant]
     Active Substance: HYDROCHLOROTHIAZIDE
     Indication: HYPERTENSION
     Dosage: 12.5 MG, BID
     Route: 048
     Dates: start: 2001
  4. LOVAZA [Concomitant]
     Active Substance: OMEGA-3-ACID ETHYL ESTERS
     Indication: HYPERCHOLESTEROLAEMIA
     Dosage: 1 G, BID
     Dates: start: 1998
  5. FOSAMAX [Suspect]
     Active Substance: ALENDRONATE SODIUM
     Indication: OSTEOPENIA
     Dosage: 70 MG, QW
     Route: 048
     Dates: start: 20010824, end: 2010
  6. NIACIN. [Concomitant]
     Active Substance: NIACIN
     Indication: HYPERCHOLESTEROLAEMIA
     Dosage: 500 MG, BID
     Route: 048
     Dates: start: 1998
  7. ATENOLOL. [Concomitant]
     Active Substance: ATENOLOL
     Indication: HYPERTENSION
     Dosage: 25 MG, QD
     Route: 048
     Dates: start: 1998

REACTIONS (28)
  - Dysphagia [Unknown]
  - Bacteriuria [Unknown]
  - Urinary tract infection [Unknown]
  - Adenotonsillectomy [Unknown]
  - Muscle spasms [Unknown]
  - Muscle spasms [Unknown]
  - Femur fracture [Unknown]
  - Cholecystectomy [Unknown]
  - Electrocardiogram abnormal [Unknown]
  - Eyelid ptosis [Unknown]
  - Femur fracture [Unknown]
  - Nocturia [Unknown]
  - Fracture delayed union [Unknown]
  - Osteoarthritis [Unknown]
  - Cataract [Unknown]
  - Irritable bowel syndrome [Unknown]
  - Arthralgia [Unknown]
  - Intramedullary rod insertion [Unknown]
  - Intramedullary rod insertion [Unknown]
  - Hypokalaemia [Unknown]
  - Restless legs syndrome [Unknown]
  - Lumbar spinal stenosis [Unknown]
  - Chest discomfort [Unknown]
  - Back pain [Not Recovered/Not Resolved]
  - Renal colic [Unknown]
  - Procedural nausea [Unknown]
  - Spinal osteoarthritis [Unknown]
  - Dizziness [Recovered/Resolved]

NARRATIVE: CASE EVENT DATE: 20040325
